FAERS Safety Report 6907693-5 (Version None)
Quarter: 2010Q3

REPORT INFORMATION
  Report Type: 
  Country: None (occurrence: None)
  Receive Date: 20100805
  Receipt Date: 20100727
  Transmission Date: 20110219
  Serious: No
  Sender: FDA-Public Use
  Company Number: JP-ASTRAZENECA-2010SE34636

PATIENT
  Age: 52 Year
  Sex: Female

DRUGS (3)
  1. CARBOCAIN INJECTION [Suspect]
     Dosage: DOSE UNKNOWN
     Route: 065
     Dates: start: 20090901, end: 20090901
  2. CELECOX [Suspect]
     Route: 048
  3. NEUROTROPIN [Suspect]
     Dosage: NUMBER OF SEPARATE DOSAGES UNKNOWN
     Route: 048

REACTIONS (1)
  - DRUG ERUPTION [None]
